FAERS Safety Report 4771293-6 (Version None)
Quarter: 2005Q3

REPORT INFORMATION
  Report Type: 
  Country: None (occurrence: None)
  Receive Date: 20050915
  Receipt Date: 20020618
  Transmission Date: 20060218
  Serious: Yes (Life-Threatening, Hospitalization, Other)
  Sender: FDA-Public Use
  Company Number: US-MERCK-0206USA01839

PATIENT
  Age: 58 Year
  Sex: Female
  Weight: 92 kg

DRUGS (15)
  1. VIOXX [Suspect]
     Indication: OSTEOARTHRITIS
     Route: 048
     Dates: end: 20040901
  2. VIOXX [Suspect]
     Route: 048
     Dates: start: 19991001, end: 20020301
  3. VIOXX [Suspect]
     Route: 048
     Dates: start: 20020101
  4. COZAAR [Concomitant]
     Route: 048
  5. PYRIDOXINE [Concomitant]
     Route: 065
  6. CYANOCOBALAMIN [Concomitant]
     Route: 065
  7. FOLIC ACID [Concomitant]
     Route: 065
  8. VITAMIN E [Concomitant]
     Route: 065
  9. IMITREX [Concomitant]
     Route: 065
  10. ZESTRIL [Concomitant]
     Route: 065
  11. ASPIRIN [Concomitant]
     Route: 065
  12. CHONDROITIN AND GLUCOSAMINE [Concomitant]
     Route: 065
  13. PREMPRO [Suspect]
     Indication: MENOPAUSE
     Route: 048
     Dates: end: 20001201
  14. COVERA-HS [Concomitant]
     Route: 048
  15. CELEBREX [Concomitant]
     Route: 065

REACTIONS (2)
  - DEEP VEIN THROMBOSIS [None]
  - PULMONARY EMBOLISM [None]
